FAERS Safety Report 7031458-X (Version None)
Quarter: 2010Q4

REPORT INFORMATION
  Report Type: 
  Country: None (occurrence: None)
  Receive Date: 20101006
  Receipt Date: 20100930
  Transmission Date: 20110411
  Serious: Yes (Death, Hospitalization, Other)
  Sender: FDA-Public Use
  Company Number: BR-ABBOTT-10P-020-0673973-00

PATIENT
  Sex: Male

DRUGS (1)
  1. HUMIRA [Suspect]
     Indication: CROHN'S DISEASE
     Dates: start: 20100718, end: 20100801

REACTIONS (4)
  - CEREBROVASCULAR ACCIDENT [None]
  - NEPHRITIS [None]
  - PNEUMONIA [None]
  - SEPSIS [None]
